FAERS Safety Report 10128724 (Version 2)
Quarter: 2014Q2

REPORT INFORMATION
  Report Type: Spontaneous
  Country: JP (occurrence: JP)
  Receive Date: 20140428
  Receipt Date: 20140501
  Transmission Date: 20141212
  Serious: Yes (Hospitalization, Other)
  Sender: FDA-Public Use
  Company Number: JP-ROCHE-1388148

PATIENT
  Age: 65 Year
  Sex: Female
  Weight: 28 kg

DRUGS (13)
  1. VALIXA [Suspect]
     Indication: CYTOMEGALOVIRUS VIRAEMIA
     Route: 048
     Dates: start: 20140409, end: 20140416
  2. ACICLOVIR [Concomitant]
     Indication: INFECTION PROPHYLAXIS
     Dosage: 1 IN 1 D
     Route: 048
     Dates: start: 20140331
  3. SULFAMETHOXAZOLE/TRIMETHOPRIM [Concomitant]
     Route: 048
     Dates: start: 20140311
  4. PREDNISOLONE [Concomitant]
     Indication: CHRONIC GRAFT VERSUS HOST DISEASE
     Route: 048
     Dates: start: 20130731
  5. PREDNISOLONE [Concomitant]
     Dosage: 1 IN 1
     Route: 065
     Dates: start: 20140331
  6. PREDNISOLONE [Concomitant]
     Route: 065
     Dates: start: 20140411
  7. PREDNISOLONE [Concomitant]
     Route: 048
     Dates: start: 20140413
  8. CLOSTRIDIUM BUTYRICUM [Concomitant]
     Dosage: 3 DOSAGE, 3 IN 1 D
     Route: 048
     Dates: start: 20140311
  9. PHENOBAL [Concomitant]
     Indication: EPILEPSY
     Dosage: 1 IN 1 D
     Route: 048
     Dates: start: 20140331
  10. KEPPRA [Concomitant]
     Indication: EPILEPSY
     Route: 048
     Dates: start: 20140311
  11. TAKEPRON [Concomitant]
     Route: 048
     Dates: start: 20140331
  12. ITRACONAZOLE [Concomitant]
     Indication: INFECTION PROPHYLAXIS
     Dosage: 1 IN 1D
     Route: 048
     Dates: start: 20140331
  13. RISPERIDONE [Concomitant]
     Indication: PSYCHIATRIC SYMPTOM
     Dosage: 1 IN 1 D
     Route: 048
     Dates: start: 20140331

REACTIONS (1)
  - Pancreatitis [Recovering/Resolving]
